FAERS Safety Report 10250094 (Version 2)
Quarter: 2014Q3

REPORT INFORMATION
  Report Type: Spontaneous
  Country: FR (occurrence: FR)
  Receive Date: 20140620
  Receipt Date: 20140707
  Transmission Date: 20150326
  Serious: Yes (Other)
  Sender: FDA-Public Use
  Company Number: FR-PFIZER INC-2014166485

PATIENT
  Age: 76 Year
  Sex: Male

DRUGS (5)
  1. JANUMET [Suspect]
     Active Substance: METFORMIN HYDROCHLORIDE\SITAGLIPTIN PHOSPHATE
     Dosage: METFORMIN HYDROCHLORIDE850 MG/ SITAGLIPTIN PHOSPHATE MONOHYDRATE 50 MG,1 DF, 2X/DAY
     Route: 048
  2. SERETIDE [Concomitant]
     Active Substance: FLUTICASONE FUROATE\SALMETEROL XINAFOATE
     Dosage: FLUTICASONE PROPIONATE 500UG/ SALMETEROL XINAFOATE50 ?G, 1 DF, 2X/DAY
     Route: 055
  3. DIAMICRON [Suspect]
     Active Substance: GLICLAZIDE
     Dosage: 60 MG, 1X/DAY (STRENGTH 30MG)
     Route: 048
  4. MONO-TILDIEM [Concomitant]
     Active Substance: DILTIAZEM HYDROCHLORIDE
     Dosage: 300 MG, 1X/DAY
     Route: 048
  5. MEDROL [Suspect]
     Active Substance: METHYLPREDNISOLONE
     Indication: METASTASES TO CENTRAL NERVOUS SYSTEM
     Dosage: UNK
     Route: 048
     Dates: start: 201403

REACTIONS (2)
  - Diabetic ketoacidosis [Recovered/Resolved]
  - Hyperglycaemia [Recovered/Resolved]

NARRATIVE: CASE EVENT DATE: 20140327
